FAERS Safety Report 6425101-8 (Version None)
Quarter: 2009Q4

REPORT INFORMATION
  Report Type: 
  Country: None (occurrence: None)
  Receive Date: 20091103
  Receipt Date: 20091022
  Transmission Date: 20100525
  Serious: Yes (Death)
  Sender: FDA-Public Use
  Company Number: KR-PFIZER INC-2009287414

PATIENT
  Age: 60 Year
  Sex: Female
  Weight: 70 kg

DRUGS (6)
  1. VORICONAZOLE [Suspect]
     Indication: FUNGAL INFECTION
     Dosage: 360 MG, 2X/DAY
     Route: 042
     Dates: start: 20070817, end: 20070817
  2. VORICONAZOLE [Suspect]
     Dosage: 200 MG, 2X/DAY
     Route: 042
     Dates: start: 20070818, end: 20070830
  3. VANCOMYCIN [Concomitant]
     Indication: PLEURAL DISORDER
     Dosage: 1000 MG, 2X/DAY
     Route: 041
     Dates: start: 20070816, end: 20070830
  4. MEROPENEM [Concomitant]
     Indication: PLEURAL DISORDER
     Dosage: 1000 MG, 3X/DAY
     Route: 041
     Dates: start: 20070815, end: 20070830
  5. PYRIDOXIN [Concomitant]
     Indication: VITAMIN SUPPLEMENTATION
     Dosage: 100 MG, 2X/DAY
     Route: 048
     Dates: start: 20070811, end: 20070828
  6. FOLATE [Concomitant]
     Indication: VITAMIN SUPPLEMENTATION
     Dosage: 1 MG, 2X/DAY
     Route: 048
     Dates: start: 20070707, end: 20070828

REACTIONS (1)
  - LEUKAEMIA [None]
